FAERS Safety Report 8902302 (Version 2)
Quarter: 2012Q4

REPORT INFORMATION
  Report Type: 
  Country: GB (occurrence: GB)
  Receive Date: 20121112
  Receipt Date: 20121221
  Transmission Date: 20130627
  Serious: Yes (Hospitalization, Other)
  Sender: FDA-Public Use
  Company Number: GB-JNJFOC-20121103877

PATIENT
  Sex: Male
  Weight: 117 kg

DRUGS (10)
  1. XARELTO [Suspect]
     Indication: CEREBROVASCULAR ACCIDENT PROPHYLAXIS
     Route: 048
  2. XARELTO [Suspect]
     Indication: ATRIAL FIBRILLATION
     Route: 048
  3. PRIMIDONE [Concomitant]
     Route: 065
  4. FUROSEMIDE [Concomitant]
     Route: 065
  5. DIGOXIN [Concomitant]
     Route: 065
  6. AMITRIPTYLINE [Concomitant]
     Route: 065
  7. PARACETAMOL [Concomitant]
     Route: 065
  8. SALBUTAMOL [Concomitant]
     Route: 065
  9. SYMBICORT [Concomitant]
     Route: 065
  10. TIOTROPIUM [Concomitant]
     Route: 065

REACTIONS (2)
  - Depression [Recovering/Resolving]
  - Lower respiratory tract infection [Unknown]
